FAERS Safety Report 6437843-9 (Version None)
Quarter: 2009Q4

REPORT INFORMATION
  Report Type: 
  Country: None (occurrence: None)
  Receive Date: 20091112
  Receipt Date: 20091030
  Transmission Date: 20100525
  Serious: Yes (Other)
  Sender: FDA-Public Use
  Company Number: US-GENENTECH-293800

PATIENT

DRUGS (1)
  1. ACTIVASE [Suspect]
     Indication: EMPYEMA
     Dosage: UNK
     Route: 034

REACTIONS (1)
  - HAEMOTHORAX [None]
